FAERS Safety Report 4436684-1 (Version None)
Quarter: 2004Q3

REPORT INFORMATION
  Report Type: 
  Country: None (occurrence: None)
  Receive Date: 20040827
  Receipt Date: 20040827
  Transmission Date: 20050211
  Serious: Yes (Death)
  Sender: FDA-Public Use
  Company Number: None

PATIENT
  Age: 58 Year
  Sex: Female
  Weight: 47.5 kg

DRUGS (9)
  1. PAXLITAXEL [Suspect]
     Indication: BLADDER CANCER
     Dosage: 200 MG/M2, D1, IV
     Route: 042
     Dates: start: 20040414, end: 20040804
  2. CARBOPLATIN [Suspect]
     Indication: BLADDER CANCER
     Dosage: AUC - 5, D1, IV
     Route: 042
     Dates: start: 20040414, end: 20040804
  3. GEMCITABINE [Suspect]
     Indication: BLADDER CANCER
     Dosage: 800 MG/M2, D1,8 IV
     Route: 042
     Dates: start: 20040414, end: 20040811
  4. KLONOPIN [Concomitant]
  5. COMPAZINE [Concomitant]
  6. VICODIN [Concomitant]
  7. SENNA-S [Concomitant]
  8. KYTRIL [Concomitant]
  9. BENADRYL [Concomitant]

REACTIONS (28)
  - ALANINE AMINOTRANSFERASE INCREASED [None]
  - ASPARTATE AMINOTRANSFERASE INCREASED [None]
  - BACTERIA URINE [None]
  - BLOOD PRESSURE INCREASED [None]
  - BLOOD URINE PRESENT [None]
  - BODY TEMPERATURE INCREASED [None]
  - BRAIN SCAN ABNORMAL [None]
  - CEREBRAL HAEMORRHAGE [None]
  - CHILLS [None]
  - COMA [None]
  - DYSPNOEA [None]
  - HAEMATOCRIT DECREASED [None]
  - HAEMOGLOBIN DECREASED [None]
  - HEADACHE [None]
  - HYPOKINESIA [None]
  - MUSCULOSKELETAL DISCOMFORT [None]
  - NAUSEA [None]
  - NEUTROPHIL COUNT INCREASED [None]
  - PALLOR [None]
  - PLATELET COUNT DECREASED [None]
  - PROTEIN URINE PRESENT [None]
  - PUPIL FIXED [None]
  - PUPILS UNEQUAL [None]
  - SINUS PAIN [None]
  - URINARY SEDIMENT PRESENT [None]
  - VOMITING [None]
  - WHITE BLOOD CELL COUNT INCREASED [None]
  - WHITE BLOOD CELLS URINE POSITIVE [None]
